FAERS Safety Report 6291654-6 (Version None)
Quarter: 2009Q3

REPORT INFORMATION
  Report Type: 
  Country: None (occurrence: None)
  Receive Date: 20090730
  Receipt Date: 20090717
  Transmission Date: 20100115
  Serious: Yes (Hospitalization)
  Sender: FDA-Public Use
  Company Number: FR-ELI_LILLY_AND_COMPANY-FR200907003661

PATIENT
  Age: 58 Year
  Sex: Female
  Weight: 60 kg

DRUGS (10)
  1. FORTEO [Suspect]
     Indication: OSTEOPOROSIS
     Dosage: UNK, UNKNOWN
     Route: 058
     Dates: start: 20080201, end: 20081201
  2. NEXIUM [Concomitant]
     Dosage: UNK, UNKNOWN
     Route: 065
     Dates: start: 20010101
  3. ACTONEL [Concomitant]
     Dosage: UNK, UNKNOWN
     Route: 048
     Dates: start: 20070101
  4. METHOTREXATE [Concomitant]
     Dosage: 10 MG, WEEKLY (1/W)
     Route: 048
     Dates: start: 19870101
  5. LYRICA [Concomitant]
     Indication: NEURALGIA
     Dosage: 200 MG, DAILY (1/D)
     Route: 048
  6. REMICADE [Concomitant]
     Dosage: 1 D/F, EVERY 8 WEEKS
     Route: 042
     Dates: start: 20010101, end: 20081223
  7. DIFFU K [Concomitant]
     Dosage: UNK, UNKNOWN
     Route: 065
     Dates: start: 20010101
  8. ACETAMINOPHEN [Concomitant]
     Dosage: UNK, UNKNOWN
     Route: 065
  9. PREDNISONE TAB [Concomitant]
     Dosage: UNK, UNKNOWN
     Route: 065
  10. BI-PROFENID [Concomitant]
     Dosage: UNK, OCCASIONAL INTAKES
     Route: 065

REACTIONS (3)
  - LOCALISED INFECTION [None]
  - PARAESTHESIA [None]
  - PERIPHERAL SENSORIMOTOR NEUROPATHY [None]
